FAERS Safety Report 9051615 (Version 2)
Quarter: 2013Q1

REPORT INFORMATION
  Report Type: Spontaneous
  Country: US (occurrence: US)
  Receive Date: 20130207
  Receipt Date: 20130308
  Transmission Date: 20140127
  Serious: No
  Sender: FDA-Public Use
  Company Number: US-BIOGENIDEC-2013BI009394

PATIENT
  Age: 54 Year
  Sex: Female

DRUGS (3)
  1. TYSABRI [Suspect]
     Indication: MULTIPLE SCLEROSIS
     Route: 042
     Dates: start: 20120926
  2. LYRICA [Concomitant]
     Indication: NERVE COMPRESSION
  3. HYDROCODONE [Concomitant]
     Indication: NERVE COMPRESSION

REACTIONS (9)
  - Crying [Recovered/Resolved]
  - Depression suicidal [Not Recovered/Not Resolved]
  - Pain in extremity [Recovered/Resolved]
  - Burning sensation [Recovered/Resolved]
  - Paraesthesia [Not Recovered/Not Resolved]
  - Hypoaesthesia [Not Recovered/Not Resolved]
  - Pain [Not Recovered/Not Resolved]
  - Fatigue [Recovered/Resolved]
  - Dizziness [Not Recovered/Not Resolved]
